FAERS Safety Report 20573179 (Version 1)
Quarter: 2022Q1

REPORT INFORMATION
  Report Type: Spontaneous
  Country: US (occurrence: None)
  Receive Date: 20220309
  Receipt Date: 20220309
  Transmission Date: 20220424
  Serious: Yes (Death)
  Sender: FDA-Public Use
  Company Number: None

PATIENT
  Age: 71 Year
  Sex: Female

DRUGS (1)
  1. SILDENAFIL [Suspect]
     Active Substance: SILDENAFIL
     Indication: Pulmonary hypertension
     Dosage: OTHER QUANTITY : 20;?FREQUENCY : TWICE A DAY;?
     Route: 048
     Dates: start: 202107, end: 202203

REACTIONS (1)
  - Death [None]

NARRATIVE: CASE EVENT DATE: 20220309
